FAERS Safety Report 8170195-5 (Version None)
Quarter: 2012Q1

REPORT INFORMATION
  Report Type: 
  Country: None (occurrence: None)
  Receive Date: 20120228
  Receipt Date: 20120222
  Transmission Date: 20120608
  Serious: Yes (Other)
  Sender: FDA-Public Use
  Company Number: PHHY2012AR015755

PATIENT
  Sex: Female

DRUGS (4)
  1. ALPRAZOLAM [Concomitant]
     Dosage: UNK UKN, UNK
  2. ACETYLSALICYLIC ACID SRT [Concomitant]
     Dosage: UNK UKN, UNK
  3. VITAMIN B-12 [Concomitant]
     Dosage: UNK UKN, UNK
  4. DIOVAN [Suspect]
     Indication: HYPERTENSION
     Dosage: 160 MG, DAILY
     Dates: start: 20110801

REACTIONS (4)
  - ARRHYTHMIA [None]
  - GAIT DISTURBANCE [None]
  - OSTEOARTHRITIS [None]
  - OEDEMA PERIPHERAL [None]
